FAERS Safety Report 20229428 (Version 1)
Quarter: 2021Q4

REPORT INFORMATION
  Report Type: Spontaneous
  Country: BA (occurrence: BA)
  Receive Date: 20211225
  Receipt Date: 20211225
  Transmission Date: 20220303
  Serious: Yes (Other)
  Sender: FDA-Public Use
  Company Number: BA-NOVARTISPH-NVSC2021BA289089

PATIENT
  Age: 55 Year
  Sex: Female

DRUGS (3)
  1. RIBOCICLIB [Suspect]
     Active Substance: RIBOCICLIB
     Indication: Breast cancer metastatic
     Dosage: 600 MG (RECEIVED 19 CYCLES)
     Route: 048
     Dates: start: 202003, end: 202110
  2. RIBOCICLIB [Suspect]
     Active Substance: RIBOCICLIB
     Dosage: 400 MG
     Route: 065
  3. PAMIDRONATE [Concomitant]
     Active Substance: PAMIDRONATE DISODIUM
     Indication: Product used for unknown indication
     Dosage: UNK
     Route: 065
     Dates: start: 202007

REACTIONS (4)
  - Syncope [Unknown]
  - Neutropenia [Unknown]
  - Rash erythematous [Unknown]
  - Drug eruption [Unknown]

NARRATIVE: CASE EVENT DATE: 20211001
